FAERS Safety Report 5657935-1 (Version None)
Quarter: 2008Q1

REPORT INFORMATION
  Report Type: 
  Country: None (occurrence: None)
  Receive Date: 20080305
  Receipt Date: 20080114
  Transmission Date: 20080703
  Serious: Yes (Other)
  Sender: FDA-Public Use
  Company Number: 230055J08GBR

PATIENT
  Sex: Female

DRUGS (1)
  1. REBIF [Suspect]

REACTIONS (4)
  - DISCOMFORT [None]
  - DIVERTICULITIS [None]
  - EMOTIONAL DISTRESS [None]
  - KIDNEY INFECTION [None]
